FAERS Safety Report 4449467-3 (Version None)
Quarter: 2004Q3

REPORT INFORMATION
  Report Type: 
  Country: None (occurrence: None)
  Receive Date: 20040910
  Receipt Date: 20040910
  Transmission Date: 20050211
  Serious: Yes (Other)
  Sender: FDA-Public Use
  Company Number: None

PATIENT
  Age: 90 Year
  Sex: Female

DRUGS (8)
  1. PAROXETINE HCL [Suspect]
     Indication: DEPRESSION
     Dosage: 20 MG PO QHS
     Route: 048
     Dates: start: 20040817, end: 20040820
  2. DOCUSATE [Concomitant]
  3. SEPTRA [Concomitant]
  4. M.V.I. [Concomitant]
  5. QUININE SULFATE [Concomitant]
  6. PANTOPRAZOLE [Concomitant]
  7. ASPIRIN [Concomitant]
  8. VERAPAMIL [Concomitant]

REACTIONS (1)
  - TREMOR [None]
